FAERS Safety Report 6532820-1 (Version None)
Quarter: 2010Q1

REPORT INFORMATION
  Report Type: 
  Country: None (occurrence: None)
  Receive Date: 20100111
  Receipt Date: 20091223
  Transmission Date: 20100710
  Serious: Yes (Other)
  Sender: FDA-Public Use
  Company Number: PHHY2009US60208

PATIENT
  Age: 52 Year
  Sex: Female

DRUGS (2)
  1. LESCOL [Suspect]
     Indication: HYPERCHOLESTEROLAEMIA
     Dosage: 20 MG PER DAY
  2. LIPITOR [Suspect]
     Dosage: 20 MG PER DAY

REACTIONS (9)
  - ABDOMINAL PAIN UPPER [None]
  - AUTOIMMUNE HEPATITIS [None]
  - DECREASED APPETITE [None]
  - FATIGUE [None]
  - HEPATIC CIRRHOSIS [None]
  - HEPATITIS CHRONIC ACTIVE [None]
  - HYPERSOMNIA [None]
  - LIVER DISORDER [None]
  - PRURITUS GENERALISED [None]
